FAERS Safety Report 8579471-5 (Version None)
Quarter: 2012Q3

REPORT INFORMATION
  Report Type: 
  Country: None (occurrence: None)
  Receive Date: 20120808
  Receipt Date: 20120730
  Transmission Date: 20120928
  Serious: Yes (Other)
  Sender: FDA-Public Use
  Company Number: TH-VIIV HEALTHCARE LIMITED-A0968277A

PATIENT
  Age: 40 Year
  Sex: Female

DRUGS (7)
  1. KALETRA [Suspect]
     Indication: ANTIRETROVIRAL THERAPY
     Dosage: 4TAB PER DAY
     Route: 048
     Dates: start: 20110616
  2. NORVIR [Suspect]
     Indication: ANTIRETROVIRAL THERAPY
     Dosage: 100MGD PER DAY
     Route: 048
     Dates: start: 20110404, end: 20110418
  3. EPIVIR [Suspect]
     Indication: ANTIRETROVIRAL THERAPY
     Dosage: 600MGD PER DAY
     Route: 048
     Dates: start: 20110322
  4. RETROVIR [Suspect]
     Indication: ANTIRETROVIRAL THERAPY
     Dosage: 800MGD PER DAY
     Route: 048
     Dates: start: 20110616
  5. REYATAZ [Suspect]
     Indication: ANTIRETROVIRAL THERAPY
     Dosage: 800MGD PER DAY
     Route: 048
     Dates: start: 20110419, end: 20110616
  6. INTELENCE [Suspect]
     Indication: ANTIRETROVIRAL THERAPY
     Dosage: 400MGD PER DAY
     Route: 048
     Dates: start: 20110419, end: 20110614
  7. REYATAZ [Suspect]
     Dosage: 300MGD PER DAY
     Route: 048
     Dates: start: 20110404, end: 20110418

REACTIONS (4)
  - MATERNAL EXPOSURE DURING PREGNANCY [None]
  - PREMATURE BABY [None]
  - PRE-ECLAMPSIA [None]
  - PREMATURE RUPTURE OF MEMBRANES [None]
